FAERS Safety Report 20669535 (Version 1)
Quarter: 2022Q2

REPORT INFORMATION
  Report Type: Spontaneous
  Country: US (occurrence: None)
  Receive Date: 20220403
  Receipt Date: 20220403
  Transmission Date: 20220720
  Serious: Yes (Disabling)
  Sender: FDA-Public Use
  Company Number: None

PATIENT
  Age: 35 Year
  Sex: Male
  Weight: 78.75 kg

DRUGS (1)
  1. BOTOX [Suspect]
     Active Substance: ONABOTULINUMTOXINA
     Indication: Hyperhidrosis

REACTIONS (7)
  - Skin odour abnormal [None]
  - Hypohidrosis [None]
  - Muscle injury [None]
  - Dyspnoea [None]
  - Musculoskeletal disorder [None]
  - Paralysis [None]
  - Drug ineffective [None]

NARRATIVE: CASE EVENT DATE: 20150901
